FAERS Safety Report 7909694-7 (Version None)
Quarter: 2011Q4

REPORT INFORMATION
  Report Type: 
  Country: None (occurrence: None)
  Receive Date: 20111111
  Receipt Date: 20111107
  Transmission Date: 20120403
  Serious: Yes (Death)
  Sender: FDA-Public Use
  Company Number: US-GLAXOSMITHKLINE-B0761686A

PATIENT
  Age: 56 Year
  Sex: Female
  Weight: 85 kg

DRUGS (3)
  1. BEVACIZUMAB [Suspect]
     Indication: CERVIX CARCINOMA
     Dosage: 15MGK CYCLIC
     Route: 042
     Dates: start: 20110614
  2. PACLITAXEL [Suspect]
     Indication: CERVIX CARCINOMA
     Dosage: 175MGM2 CYCLIC
     Route: 042
     Dates: start: 20110614
  3. TOPOTECAN [Suspect]
     Indication: CERVIX CARCINOMA
     Dosage: .75MGM2 CYCLIC
     Route: 042
     Dates: start: 20110614

REACTIONS (1)
  - CELLULITIS [None]
